FAERS Safety Report 16897853 (Version 3)
Quarter: 2024Q4

REPORT INFORMATION
  Report Type: Spontaneous
  Country: US (occurrence: US)
  Receive Date: 20191009
  Receipt Date: 20241107
  Transmission Date: 20250115
  Serious: Yes (Hospitalization, Other)
  Sender: SANOFI AVENTIS
  Company Number: US-SA-2019SA271256

PATIENT
  Age: 51 Year
  Sex: Female

DRUGS (18)
  1. VALGANCICLOVIR HYDROCHLORIDE [Suspect]
     Active Substance: VALGANCICLOVIR HYDROCHLORIDE
     Indication: Antiviral prophylaxis
     Dosage: 450 MG (EVERY 48-H PROPHYLACTIC DOSE)
     Dates: start: 201512, end: 2016
  2. VALGANCICLOVIR HYDROCHLORIDE [Suspect]
     Active Substance: VALGANCICLOVIR HYDROCHLORIDE
     Dosage: 450 MG, QD (RESUMED AT WEEK 14 AFTER TRANSPLANT)
  3. ANTI-THYMOCYTE GLOBULIN (RABBIT) NOS [Suspect]
     Active Substance: LAPINE T-LYMPHOCYTE IMMUNE GLOBULIN
     Dosage: 100 MG, QD (1.5 MG/KG) POST-OPERATIVE DAYS (POD) 0, 1, AND 2 (TOTAL 3 DOSES)
     Route: 042
     Dates: start: 201512
  4. METHYLPREDNISOLONE [Suspect]
     Active Substance: METHYLPREDNISOLONE
     Dosage: 250 MG (POD 0)
     Route: 042
     Dates: start: 201512
  5. PREDNISONE [Suspect]
     Active Substance: PREDNISONE
     Dosage: UNK, TAPER
     Dates: start: 201512, end: 2016
  6. PREDNISONE [Suspect]
     Active Substance: PREDNISONE
     Dosage: 5 MG, QD (CONTINUE TO BE TAPERED TO 5 MG DAILY)
     Dates: start: 2016, end: 2016
  7. PREDNISONE [Suspect]
     Active Substance: PREDNISONE
     Dosage: 15 MG, QD
     Dates: start: 2016
  8. SULFAMETHOXAZOLE\TRIMETHOPRIM [Suspect]
     Active Substance: SULFAMETHOXAZOLE\TRIMETHOPRIM
     Indication: Antifungal prophylaxis
     Dosage: 1 DF, QD (800/160 MG DAILY)
     Dates: start: 201512, end: 2016
  9. SULFAMETHOXAZOLE\TRIMETHOPRIM [Suspect]
     Active Substance: SULFAMETHOXAZOLE\TRIMETHOPRIM
     Dosage: UNK
  10. MYCOPHENOLATE MOFETIL [Suspect]
     Active Substance: MYCOPHENOLATE MOFETIL
     Dosage: 1 G, Q12H
     Route: 048
     Dates: start: 201512, end: 2016
  11. MYCOPHENOLATE MOFETIL [Suspect]
     Active Substance: MYCOPHENOLATE MOFETIL
     Dosage: 1000 MG, BID
  12. MYCOPHENOLATE MOFETIL [Suspect]
     Active Substance: MYCOPHENOLATE MOFETIL
     Dosage: 500 MG, Q12H
     Route: 048
     Dates: start: 2016, end: 2016
  13. TACROLIMUS [Suspect]
     Active Substance: TACROLIMUS
     Dosage: 1 MG, Q12H (TARGET TROUGH LEVEL OF 10?12 MG/DL)
     Dates: start: 201512, end: 2016
  14. TACROLIMUS [Suspect]
     Active Substance: TACROLIMUS
     Dosage: UNK (TARGET THE GOAL TROUGH OF 8?10 MG/DL)
     Dates: start: 2016
  15. TACROLIMUS [Suspect]
     Active Substance: TACROLIMUS
     Dosage: 13 MG, BID (TAC TROUGH WAS 7.7NG/ML )
     Dates: start: 2016, end: 2016
  16. TACROLIMUS [Suspect]
     Active Substance: TACROLIMUS
     Dosage: 17 MG, BID (TAC TROUGH LEVEL WAS REDUCED TO 6?7 NG/DL)
     Dates: start: 2016, end: 2016
  17. PENTAMIDINE [Concomitant]
     Active Substance: PENTAMIDINE
     Indication: Antifungal prophylaxis
     Dosage: UNK
     Route: 055
  18. CIPROFLOXACIN [Concomitant]
     Active Substance: CIPROFLOXACIN
     Indication: Prophylaxis urinary tract infection
     Dosage: UNK

REACTIONS (5)
  - Myelosuppression [Recovering/Resolving]
  - Marrow hyperplasia [Unknown]
  - Neutropenia [Recovered/Resolved]
  - Hyperkalaemia [Unknown]
  - Tremor [Unknown]

NARRATIVE: CASE EVENT DATE: 20160101
